FAERS Safety Report 14623926 (Version 1)
Quarter: 2018Q1

REPORT INFORMATION
  Report Type: Spontaneous
  Country: US (occurrence: US)
  Receive Date: 20180309
  Receipt Date: 20180309
  Transmission Date: 20180509
  Serious: Yes (Other)
  Sender: FDA-Public Use
  Company Number: None

PATIENT
  Age: 29 Year
  Sex: Female
  Weight: 95 kg

DRUGS (1)
  1. COSENTYX [Suspect]
     Active Substance: SECUKINUMAB

REACTIONS (3)
  - Eye inflammation [None]
  - Mouth ulceration [None]
  - Vulvovaginal pain [None]

NARRATIVE: CASE EVENT DATE: 20180307
